FAERS Safety Report 8991486 (Version 2)
Quarter: 2013Q1

REPORT INFORMATION
  Report Type: Spontaneous
  Country: US (occurrence: US)
  Receive Date: 20121231
  Receipt Date: 20130114
  Transmission Date: 20140127
  Serious: Yes (Hospitalization)
  Sender: FDA-Public Use
  Company Number: US-BIOGENIDEC-2012BI062983

PATIENT
  Age: 54 Year
  Sex: Female

DRUGS (1)
  1. AVONEX [Suspect]
     Indication: MULTIPLE SCLEROSIS
     Route: 030
     Dates: start: 20110926

REACTIONS (4)
  - Cardiac operation [Recovered/Resolved]
  - Arterial occlusive disease [Recovered/Resolved]
  - Surgical failure [Recovered/Resolved]
  - Chest pain [Recovered/Resolved]
